FAERS Safety Report 7555384-2 (Version None)
Quarter: 2011Q2

REPORT INFORMATION
  Report Type: 
  Country: None (occurrence: None)
  Receive Date: 20110617
  Receipt Date: 20110607
  Transmission Date: 20111010
  Serious: Yes (Other)
  Sender: FDA-Public Use
  Company Number: US-JNJFOC-20110501221

PATIENT
  Sex: Female
  Weight: 52.16 kg

DRUGS (11)
  1. STELARA [Suspect]
     Indication: PSORIASIS
     Route: 058
     Dates: start: 20091110
  2. STELARA [Suspect]
     Route: 058
     Dates: start: 20091215
  3. STELARA [Suspect]
     Route: 058
     Dates: start: 20100618
  4. BENICAR [Concomitant]
     Indication: HYPERTENSION
  5. HYDROXYZINE [Concomitant]
     Indication: PRURITUS
     Dosage: 25-50 MG AS NEEDED.
  6. STELARA [Suspect]
     Route: 058
     Dates: start: 20110124
  7. STELARA [Suspect]
     Route: 058
     Dates: start: 20100322
  8. CALCIUM CHANNEL BLOCKER [Concomitant]
     Indication: ILL-DEFINED DISORDER
  9. STELARA [Suspect]
     Route: 058
     Dates: start: 20100928
  10. ZYRTEC [Concomitant]
     Indication: ILL-DEFINED DISORDER
  11. STELARA [Suspect]
     Route: 058
     Dates: start: 20110416

REACTIONS (9)
  - DISORIENTATION [None]
  - MOTOR DYSFUNCTION [None]
  - HEADACHE [None]
  - DIZZINESS [None]
  - SPEECH DISORDER [None]
  - DYSARTHRIA [None]
  - VISION BLURRED [None]
  - CONFUSIONAL STATE [None]
  - FATIGUE [None]
